FAERS Safety Report 9751465 (Version 2)
Quarter: 2014Q1

REPORT INFORMATION
  Report Type: Spontaneous
  Country: IT (occurrence: IT)
  Receive Date: 20131212
  Receipt Date: 20140219
  Transmission Date: 20141002
  Serious: Yes (Hospitalization)
  Sender: FDA-Public Use
  Company Number: PHHY2013IT145279

PATIENT
  Age: 87 Year
  Sex: Male

DRUGS (3)
  1. ACETYLSALICYLIC ACID [Suspect]
     Dosage: 1 DF, QD
     Route: 048
     Dates: start: 20110101
  2. CASODEX [Suspect]
     Indication: PROSTATE CANCER
     Dosage: 50 MG, QD
     Route: 048
     Dates: start: 20110101
  3. CONGESCOR [Concomitant]

REACTIONS (1)
  - Haematuria [Not Recovered/Not Resolved]
